FAERS Safety Report 13031180 (Version 2)
Quarter: 2016Q4

REPORT INFORMATION
  Report Type: Spontaneous
  Country: US (occurrence: US)
  Receive Date: 20161215
  Receipt Date: 20161220
  Transmission Date: 20170207
  Serious: Yes (Other)
  Sender: FDA-Public Use
  Company Number: US-RECKITT BENCKISER HEALTHCARE INT LIMITED-RB-94165-2016

PATIENT
  Age: 47 Year
  Sex: Male

DRUGS (1)
  1. MUCINEX FULL FORCE [Suspect]
     Active Substance: OXYMETAZOLINE HYDROCHLORIDE
     Indication: RESPIRATORY TRACT CONGESTION
     Dosage: 2 SPRAYS IN EACH NOSTRIL, SINGLE
     Route: 045
     Dates: start: 20161204, end: 20161204

REACTIONS (4)
  - Pain [Unknown]
  - Sinusitis [Unknown]
  - Eyelid oedema [Unknown]
  - Swelling face [Unknown]

NARRATIVE: CASE EVENT DATE: 20161205
